FAERS Safety Report 6876071-X (Version None)
Quarter: 2010Q3

REPORT INFORMATION
  Report Type: 
  Country: None (occurrence: None)
  Receive Date: 20100723
  Receipt Date: 20100708
  Transmission Date: 20110219
  Serious: Yes (Hospitalization)
  Sender: FDA-Public Use
  Company Number: 1000015162

PATIENT
  Age: 75 Year
  Sex: Female

DRUGS (6)
  1. MEMANTINE HCL [Suspect]
     Dosage: 20 MG (20 MG, 1 IN 1 D), ORAL
     Route: 048
     Dates: start: 20100401, end: 20100514
  2. PLAVIX [Suspect]
     Dosage: 75 MG (75 MG, 1 IN 1 D), ORAL
     Route: 048
     Dates: start: 20100504, end: 20100514
  3. SERESTA [Concomitant]
  4. NOCTAMIDE [Concomitant]
  5. LANTUS [Concomitant]
  6. NOVONORM [Concomitant]

REACTIONS (8)
  - FALL [None]
  - GENERAL PHYSICAL HEALTH DETERIORATION [None]
  - HEPATITIS [None]
  - MALNUTRITION [None]
  - PYELONEPHRITIS [None]
  - SKIN ULCER [None]
  - SOMNOLENCE [None]
  - WOUND [None]
